FAERS Safety Report 5074405-2 (Version None)
Quarter: 2006Q3

REPORT INFORMATION
  Report Type: 
  Country: None (occurrence: None)
  Receive Date: 20060714
  Receipt Date: 20060324
  Transmission Date: 20061208
  Serious: No
  Sender: FDA-Public Use
  Company Number: 2006SP001375

PATIENT
  Age: 80 Year
  Sex: Female
  Weight: 59.4212 kg

DRUGS (9)
  1. LUNESTA [Suspect]
     Indication: INSOMNIA
     Dosage: 1 MG;PRN;ORAL
     Route: 048
     Dates: start: 20060101
  2. LETROZOLE [Concomitant]
  3. DIGOXIN [Concomitant]
  4. METOPROLOL TARTRATE [Concomitant]
  5. LASIX [Concomitant]
  6. POTASSIUM [Concomitant]
  7. ECOTRIN [Concomitant]
  8. PRIMIDONE [Concomitant]
  9. OTHER CHEMOTHERAPEUTICS [Concomitant]

REACTIONS (1)
  - DRUG EFFECT DECREASED [None]
